FAERS Safety Report 22589422 (Version 3)
Quarter: 2024Q1

REPORT INFORMATION
  Report Type: Spontaneous
  Country: PH (occurrence: None)
  Receive Date: 20230612
  Receipt Date: 20240305
  Transmission Date: 20240410
  Serious: Yes (Death, Hospitalization, Other)
  Sender: FDA-Public Use
  Company Number: 2023A133843

PATIENT
  Age: 72 Year
  Sex: Male
  Weight: 60 kg

DRUGS (2)
  1. CALQUENCE [Suspect]
     Active Substance: ACALABRUTINIB
     Indication: Chronic lymphocytic leukaemia
     Route: 048
     Dates: start: 20230511, end: 20230605
  2. ERYTHROPOIETIN [Concomitant]
     Active Substance: ERYTHROPOIETIN
     Indication: Anaemia
     Dosage: 3X / WEEK
     Route: 058
     Dates: start: 2018

REACTIONS (14)
  - Blood creatinine increased [Fatal]
  - Aspartate aminotransferase increased [Fatal]
  - Acute kidney injury [Fatal]
  - Tumour lysis syndrome [Fatal]
  - Coma scale abnormal [Unknown]
  - Chest pain [Unknown]
  - Metabolic acidosis [Unknown]
  - Dyspnoea [Unknown]
  - Hyperkalaemia [Unknown]
  - Nausea [Unknown]
  - Vomiting [Unknown]
  - Drug ineffective [Unknown]
  - White blood cell count increased [Unknown]
  - Full blood count abnormal [Unknown]
